FAERS Safety Report 14462384 (Version 4)
Quarter: 2019Q1

REPORT INFORMATION
  Report Type: Spontaneous
  Country: US (occurrence: US)
  Receive Date: 20180130
  Receipt Date: 20190213
  Transmission Date: 20190417
  Serious: No
  Sender: FDA-Public Use
  Company Number: US-ACTELION-A-US2017-152180

PATIENT
  Age: 65 Year
  Sex: Female
  Weight: 73.16 kg

DRUGS (5)
  1. OMEPRAZOLE. [Concomitant]
     Active Substance: OMEPRAZOLE
     Indication: DYSPEPSIA
     Dosage: 20 MG, QD
  2. OXYGEN. [Concomitant]
     Active Substance: OXYGEN
  3. COUMADIN [Concomitant]
     Active Substance: WARFARIN SODIUM
  4. TRACLEER [Suspect]
     Active Substance: BOSENTAN
     Indication: PULMONARY ARTERIAL HYPERTENSION
     Dosage: 125 MG, BID
     Route: 048
  5. ADCIRCA [Suspect]
     Active Substance: TADALAFIL
     Indication: PRODUCT USED FOR UNKNOWN INDICATION
     Route: 065

REACTIONS (16)
  - Total lung capacity decreased [Unknown]
  - Pulmonary congestion [Unknown]
  - Dyspepsia [Unknown]
  - Feeling hot [Unknown]
  - Pneumonitis [Unknown]
  - Rhinorrhoea [Unknown]
  - Secretion discharge [Unknown]
  - Condition aggravated [Unknown]
  - Oedema [Unknown]
  - Pulmonary fibrosis [Unknown]
  - Pulmonary arterial hypertension [Unknown]
  - Dyspnoea [Unknown]
  - Feeling cold [Unknown]
  - Poor quality sleep [Unknown]
  - Urinary tract infection [Unknown]
  - Sinus disorder [Unknown]

NARRATIVE: CASE EVENT DATE: 201703
